FAERS Safety Report 7683156-7 (Version None)
Quarter: 2011Q3

REPORT INFORMATION
  Report Type: 
  Country: None (occurrence: None)
  Receive Date: 20110815
  Receipt Date: 20110731
  Transmission Date: 20111222
  Serious: Yes (Death)
  Sender: FDA-Public Use
  Company Number: NZ-ARROW GEN-2011-12774

PATIENT

DRUGS (4)
  1. ACETYLSALICYLIC ACID SRT [Suspect]
     Indication: PRODUCT USED FOR UNKNOWN INDICATION
  2. DIPYRIDAMOLE [Suspect]
     Indication: PRODUCT USED FOR UNKNOWN INDICATION
  3. CLOPIDEGREL [Suspect]
     Indication: PRODUCT USED FOR UNKNOWN INDICATION
  4. ENOXAPARIN [Suspect]
     Indication: PRODUCT USED FOR UNKNOWN INDICATION

REACTIONS (1)
  - INTRA-ABDOMINAL HAEMORRHAGE [None]
